FAERS Safety Report 4621868-X (Version None)
Quarter: 2005Q1

REPORT INFORMATION
  Report Type: 
  Country: None (occurrence: None)
  Receive Date: 20050329
  Receipt Date: 20050317
  Transmission Date: 20050727
  Serious: Yes (Hospitalization, Other)
  Sender: FDA-Public Use
  Company Number: JP-BRISTOL-MYERS SQUIBB COMPANY-12902490

PATIENT
  Age: 50 Year
  Sex: Male

DRUGS (5)
  1. VIDEX EC [Suspect]
     Indication: HIV INFECTION
     Route: 048
  2. RETROVIR [Suspect]
     Indication: HIV INFECTION
     Route: 048
  3. KALETRA [Suspect]
     Indication: HIV INFECTION
     Route: 048
  4. LAMIVUDINE [Suspect]
     Indication: HIV INFECTION
  5. PREDONINE [Concomitant]

REACTIONS (3)
  - HEMIPLEGIA [None]
  - IMMUNE RECONSTITUTION SYNDROME [None]
  - QUADRIPLEGIA [None]
